FAERS Safety Report 7539703-9 (Version None)
Quarter: 2011Q2

REPORT INFORMATION
  Report Type: 
  Country: None (occurrence: None)
  Receive Date: 20110610
  Receipt Date: 20110607
  Transmission Date: 20111010
  Serious: Yes (Death, Hospitalization)
  Sender: FDA-Public Use
  Company Number: JP-PFIZER INC-2010140252

PATIENT
  Age: 70 Year
  Sex: Male
  Weight: 49 kg

DRUGS (6)
  1. SPIRIVA [Concomitant]
     Dosage: UNK
     Dates: start: 20100831
  2. SILDENAFIL CITRATE [Suspect]
     Indication: PULMONARY FIBROSIS
     Dosage: 20 MG, 3X/DAY
     Route: 048
     Dates: start: 20091119
  3. WARFARIN [Concomitant]
     Dosage: UNK
     Route: 048
  4. TRACLEER [Concomitant]
     Indication: PULMONARY FIBROSIS
     Dosage: UNK
     Route: 048
  5. CARVEDILOL [Concomitant]
     Dosage: UNK
     Route: 048
  6. LASIX [Concomitant]
     Dosage: UNK
     Route: 048

REACTIONS (2)
  - GASTRIC CANCER [None]
  - RESPIRATORY FAILURE [None]
